FAERS Safety Report 16187258 (Version 2)
Quarter: 2019Q2

REPORT INFORMATION
  Report Type: Report from Study
  Country: None (occurrence: US)
  Receive Date: 20190411
  Receipt Date: 20190606
  Transmission Date: 20190711
  Serious: Yes (Hospitalization)
  Sender: FDA-Public Use
  Company Number: US-ABBVIE-18K-163-2593686-00

PATIENT
  Age: 57 Year
  Sex: Male

DRUGS (2)
  1. HUMIRA [Suspect]
     Active Substance: ADALIMUMAB
     Indication: PSORIASIS
     Dosage: DAY 1
     Route: 058
     Dates: start: 20181130, end: 20181130
  2. HUMIRA [Suspect]
     Active Substance: ADALIMUMAB
     Dosage: DAY 8
     Route: 058
     Dates: start: 20181207, end: 201904

REACTIONS (27)
  - General physical condition abnormal [Not Recovered/Not Resolved]
  - Anger [Unknown]
  - Vision blurred [Unknown]
  - Peripheral swelling [Unknown]
  - Food intolerance [Not Recovered/Not Resolved]
  - Emotional distress [Unknown]
  - Hypoaesthesia [Recovering/Resolving]
  - Nasopharyngitis [Unknown]
  - Seasonal allergy [Unknown]
  - Dyspnoea [Recovered/Resolved]
  - Anxiety [Unknown]
  - Rash [Not Recovered/Not Resolved]
  - Dizziness [Not Recovered/Not Resolved]
  - Frustration tolerance decreased [Unknown]
  - Fatigue [Not Recovered/Not Resolved]
  - Skin irritation [Recovered/Resolved]
  - Rhinorrhoea [Unknown]
  - Hypertension [Unknown]
  - Malaise [Unknown]
  - Feeling abnormal [Unknown]
  - Weight decreased [Unknown]
  - Dysphagia [Unknown]
  - Injection site pain [Recovered/Resolved]
  - Headache [Recovered/Resolved]
  - Feeling cold [Unknown]
  - Injection site irritation [Not Recovered/Not Resolved]
  - Psoriasis [Recovering/Resolving]

NARRATIVE: CASE EVENT DATE: 2018
